FAERS Safety Report 6977408-3 (Version None)
Quarter: 2010Q3

REPORT INFORMATION
  Report Type: 
  Country: None (occurrence: None)
  Receive Date: 20100910
  Receipt Date: 20100902
  Transmission Date: 20110219
  Serious: Yes (Hospitalization, Other)
  Sender: FDA-Public Use
  Company Number: BR-ABBOTT-10P-020-0668022-00

PATIENT
  Sex: Female
  Weight: 75 kg

DRUGS (5)
  1. HUMIRA [Suspect]
     Indication: RHEUMATOID ARTHRITIS
     Route: 058
     Dates: start: 20090717
  2. SOMALGIN [Concomitant]
     Indication: BLOOD PRESSURE MANAGEMENT
     Route: 048
     Dates: start: 20100807
  3. PANTOPAZ [Concomitant]
     Indication: GASTRIC DISORDER
     Route: 048
     Dates: start: 20100807
  4. DIGESPRID [Concomitant]
     Indication: GASTRIC DISORDER
     Route: 048
     Dates: start: 20100807
  5. PREDNISONE/NIMESULIDE/FOLIC ACID/FAMOTIDINE [Concomitant]
     Indication: RHEUMATOID ARTHRITIS
     Dosage: 2.5MG/80MG/0.5MG/40MG
     Route: 048
     Dates: start: 20090717

REACTIONS (6)
  - BALANCE DISORDER [None]
  - CEREBROVASCULAR ACCIDENT [None]
  - DECREASED APPETITE [None]
  - DYSPHAGIA [None]
  - GAIT DISTURBANCE [None]
  - SPEECH DISORDER [None]
